FAERS Safety Report 7973577-7 (Version None)
Quarter: 2011Q4

REPORT INFORMATION
  Report Type: 
  Country: None (occurrence: None)
  Receive Date: 20111209
  Receipt Date: 20111128
  Transmission Date: 20120403
  Serious: Yes (Life-Threatening, Hospitalization)
  Sender: FDA-Public Use
  Company Number: TPA2011A03146

PATIENT
  Age: 69 Year
  Sex: Male

DRUGS (2)
  1. PHENPROCOUMON (PHENPROCOUMON) [Concomitant]
  2. ADENURIC (FEBUXOSTAT) [Suspect]
     Indication: HYPERURICAEMIA
     Dosage: 80 MG (80 MG,1 IN 1 D) ORAL
     Route: 048
     Dates: start: 20110427, end: 20110512

REACTIONS (1)
  - RENAL FAILURE [None]
